FAERS Safety Report 7472569-4 (Version None)
Quarter: 2011Q2

REPORT INFORMATION
  Report Type: 
  Country: None (occurrence: None)
  Receive Date: 20110511
  Receipt Date: 20110426
  Transmission Date: 20111010
  Serious: No
  Sender: FDA-Public Use
  Company Number: US-B.I. PHARMACEUTICALS,INC./RIDGEFIELD-2011-BP-11853BP

PATIENT
  Age: 77 Year
  Sex: Female

DRUGS (15)
  1. CARVEDILOL [Concomitant]
     Indication: BLOOD PRESSURE
  2. ACTOS [Concomitant]
     Indication: DIABETES MELLITUS
     Dosage: 15 MG
     Route: 048
     Dates: start: 20050101
  3. GLIPIZIDE [Concomitant]
     Indication: DIABETES MELLITUS
     Dosage: 2.5 MG
     Route: 048
     Dates: start: 20110301
  4. ADVAIR DISKUS 100/50 [Concomitant]
     Indication: ASTHMA
     Route: 055
     Dates: start: 20101101
  5. THEOPHYLLINE [Concomitant]
     Indication: CHRONIC OBSTRUCTIVE PULMONARY DISEASE
     Dosage: 400 MG
     Route: 048
     Dates: start: 20101201
  6. TRAVATAN [Concomitant]
     Indication: GLAUCOMA
     Dates: start: 20101101
  7. COMBIVENT [Concomitant]
     Indication: DYSPNOEA
     Dosage: 12 PUF
     Route: 055
     Dates: start: 20060101
  8. ZETIA [Concomitant]
     Indication: BLOOD CHOLESTEROL INCREASED
     Dosage: 10 MG
     Route: 048
     Dates: start: 20070101
  9. CARVEDILOL [Concomitant]
     Indication: HYPERTENSION
     Dosage: 6.25 MG
     Route: 048
     Dates: start: 20101201
  10. ALBUTEROL [Concomitant]
     Indication: DYSPNOEA
     Route: 055
     Dates: start: 20101101
  11. SPIRIVA [Suspect]
     Indication: CHRONIC OBSTRUCTIVE PULMONARY DISEASE
     Dosage: 18 MCG
     Route: 048
     Dates: start: 20101201
  12. SIMVASTATIN [Concomitant]
     Indication: BLOOD CHOLESTEROL INCREASED
     Dosage: 40 MG
     Route: 048
     Dates: start: 20040101
  13. AMLODIPINE BESYLATE [Concomitant]
     Indication: HYPERTENSION
     Dosage: 5 MG
     Route: 048
     Dates: start: 20101201
  14. DIOVAN [Concomitant]
     Indication: HYPERTENSION
     Dosage: 80 MG
     Route: 048
     Dates: start: 20101201
  15. ASPIRIN [Concomitant]
     Indication: PROPHYLAXIS
     Dosage: 81 MG
     Route: 048
     Dates: start: 20110101

REACTIONS (2)
  - DRUG INEFFECTIVE [None]
  - DYSPNOEA EXERTIONAL [None]
